FAERS Safety Report 12453648 (Version 1)
Quarter: 2016Q2

REPORT INFORMATION
  Report Type: Spontaneous
  Country: BR (occurrence: BR)
  Receive Date: 20160609
  Receipt Date: 20160609
  Transmission Date: 20160815
  Serious: Yes (Other)
  Sender: FDA-Public Use
  Company Number: PHHY2016BR076892

PATIENT
  Sex: Female

DRUGS (3)
  1. CANDESARTAN+HYDROCHLOROTHIAZIDE [Suspect]
     Active Substance: CANDESARTAN CILEXETIL\HYDROCHLOROTHIAZIDE
     Indication: ANGINA PECTORIS
  2. CANDESARTAN+HYDROCHLOROTHIAZIDE [Suspect]
     Active Substance: CANDESARTAN CILEXETIL\HYDROCHLOROTHIAZIDE
     Indication: BLOOD PRESSURE ABNORMAL
     Dosage: 28.5 MG, QD
     Route: 048
  3. NEBILET [Concomitant]
     Active Substance: NEBIVOLOL

REACTIONS (6)
  - Hypertension [Unknown]
  - Product quality issue [Unknown]
  - Varicose vein [Unknown]
  - Feeling abnormal [Unknown]
  - Ligament sprain [Unknown]
  - Drug ineffective [Unknown]
